FAERS Safety Report 4694394-X (Version None)
Quarter: 2005Q2

REPORT INFORMATION
  Report Type: 
  Country: None (occurrence: None)
  Receive Date: 20050614
  Receipt Date: 20050310
  Transmission Date: 20051028
  Serious: No
  Sender: FDA-Public Use
  Company Number: USA050392959

PATIENT
  Age: 57 Year
  Sex: Female
  Weight: 75 kg

DRUGS (12)
  1. CIALIS [Suspect]
     Dosage: 10 MG
     Dates: start: 20050310, end: 20050310
  2. ALLEGRA [Concomitant]
  3. FLOVAN [Concomitant]
  4. ALBUTEROL [Concomitant]
  5. PROZAC [Concomitant]
  6. XANAX (ALPRAZOLAM DUM) [Concomitant]
  7. NAPROXEN SODIUM [Concomitant]
  8. GENERIL [Concomitant]
  9. PIRONET (PIROXICAM) [Concomitant]
  10. PREMARIN [Concomitant]
  11. AMOXICILINA (AMOXICILLIN) [Concomitant]
  12. RHINOCORT [Concomitant]

REACTIONS (1)
  - MEDICATION ERROR [None]
